FAERS Safety Report 5227045-6 (Version None)
Quarter: 2007Q1

REPORT INFORMATION
  Report Type: 
  Country: None (occurrence: None)
  Receive Date: 20070201
  Receipt Date: 20070201
  Transmission Date: 20070707
  Serious: Yes (Hospitalization)
  Sender: FDA-Public Use
  Company Number: None

PATIENT
  Sex: Female
  Weight: 52.1637 kg

DRUGS (1)
  1. ZYVOX [Suspect]
     Indication: ENTEROCOCCAL INFECTION
     Dosage: 1 TAB Q 12 HOURS PO
     Route: 048
     Dates: start: 20061106, end: 20061116

REACTIONS (2)
  - DIARRHOEA [None]
  - PYREXIA [None]
